FAERS Safety Report 8306390-1 (Version None)
Quarter: 2012Q2

REPORT INFORMATION
  Report Type: 
  Country: None (occurrence: None)
  Receive Date: 20120423
  Receipt Date: 20120419
  Transmission Date: 20120825
  Serious: Yes (Hospitalization)
  Sender: FDA-Public Use
  Company Number: JP-ABBOTT-12P-087-0916937-00

PATIENT
  Sex: Female
  Weight: 44.6 kg

DRUGS (19)
  1. MESALAMINE [Concomitant]
     Indication: CROHN'S DISEASE
     Route: 048
     Dates: start: 20120305
  2. FERRIC OXIDE, SACCHARATED [Concomitant]
     Indication: ANAEMIA
  3. FULCALIQ [Concomitant]
     Indication: PARENTERAL NUTRITION
     Route: 042
     Dates: start: 20120305
  4. CARBAZOCHROME SODIUM SULFONATE HYDRATE [Concomitant]
     Indication: ANAEMIA
     Route: 042
     Dates: start: 20120305, end: 20120307
  5. HUMIRA [Suspect]
     Indication: CROHN'S DISEASE
     Route: 058
     Dates: start: 20120314, end: 20120314
  6. CLOSTRIDIUM BUTYRICUM [Concomitant]
     Indication: CROHN'S DISEASE
     Route: 048
     Dates: start: 20120305
  7. FULCALIQ 1 [Concomitant]
     Dates: start: 20120316, end: 20120321
  8. LEVOFLOXACIN HYDRATE [Concomitant]
     Indication: INFECTION
     Route: 048
     Dates: start: 20120305, end: 20120307
  9. TPN ELECTROLYTES IN PLASTIC CONTAINER [Concomitant]
     Indication: NUTRITIONAL SUPPORT
     Route: 042
     Dates: start: 20120305, end: 20120307
  10. SENNOSIDE [Concomitant]
     Indication: LAXATIVE SUPPORTIVE CARE
  11. REBAMIPIDE [Concomitant]
     Indication: CROHN'S DISEASE
     Dosage: 100 MG X 3
     Route: 048
     Dates: start: 20120305
  12. SENNOSIDE [Concomitant]
     Indication: X-RAY WITH CONTRAST UPPER GASTROINTESTINAL TRACT
     Route: 048
     Dates: start: 20120308, end: 20120310
  13. FERRIC OXIDE, SACCHARATED [Concomitant]
     Indication: PARENTERAL NUTRITION
     Dosage: 40 MG/2 ML ONCE DAILY
     Route: 042
     Dates: start: 20120305, end: 20120319
  14. TPN [Concomitant]
     Indication: CROHN'S DISEASE
     Route: 048
     Dates: start: 20120314, end: 20120319
  15. CEFOZOPRAN HYDROCHLORIDE [Concomitant]
     Indication: INFECTION
     Route: 042
     Dates: start: 20120305, end: 20120308
  16. FULCALIQ 3 [Concomitant]
     Indication: PRODUCT USED FOR UNKNOWN INDICATION
     Route: 042
     Dates: start: 20120312, end: 20120315
  17. FULCALIQ 1 [Concomitant]
     Indication: NUTRITIONAL SUPPORT
     Route: 042
     Dates: start: 20120308, end: 20120309
  18. FULCALIQ 2 [Concomitant]
     Indication: NUTRITIONAL SUPPORT
     Route: 042
     Dates: start: 20120310, end: 20120311
  19. TPN [Concomitant]
     Indication: NUTRITIONAL SUPPORT

REACTIONS (8)
  - DRUG HYPERSENSITIVITY [None]
  - PRURITUS [None]
  - ASPARTATE AMINOTRANSFERASE INCREASED [None]
  - LIVER DISORDER [None]
  - RASH [None]
  - SNEEZING [None]
  - NUTRITIONAL CONDITION ABNORMAL [None]
  - ALANINE AMINOTRANSFERASE INCREASED [None]
